FAERS Safety Report 7425994-1 (Version None)
Quarter: 2011Q2

REPORT INFORMATION
  Report Type: 
  Country: None (occurrence: None)
  Receive Date: 20110420
  Receipt Date: 20110414
  Transmission Date: 20111010
  Serious: Yes (Death, Hospitalization)
  Sender: FDA-Public Use
  Company Number: ZA-SANOFI-AVENTIS-2011SA013502

PATIENT
  Age: 67 Year
  Sex: Female
  Weight: 56.5 kg

DRUGS (20)
  1. KYTRIL [Concomitant]
     Route: 048
     Dates: start: 20110225, end: 20110227
  2. RANITIDINE [Concomitant]
     Route: 042
     Dates: start: 20110221
  3. FUROSEMIDE [Concomitant]
     Route: 048
     Dates: start: 20110221
  4. MAXOLON [Concomitant]
     Route: 048
     Dates: start: 20110221
  5. EMEND [Concomitant]
     Route: 048
     Dates: start: 20110221
  6. KYTRIL [Concomitant]
     Route: 042
     Dates: start: 20110225, end: 20110225
  7. SOLU-CORTEF [Concomitant]
     Route: 042
     Dates: start: 20110221
  8. PHENERGAN HCL [Concomitant]
     Route: 030
     Dates: start: 20110221
  9. EMEND [Concomitant]
     Route: 048
     Dates: start: 20110221, end: 20110221
  10. DOCETAXEL [Suspect]
     Route: 041
     Dates: start: 20110221, end: 20110221
  11. GRANOCYTE [Suspect]
     Indication: PROPHYLAXIS
     Route: 065
     Dates: start: 20110224
  12. DECASONE [Concomitant]
     Route: 065
     Dates: start: 20110221, end: 20110223
  13. MEDROL [Concomitant]
     Route: 048
     Dates: start: 20110221
  14. ALL OTHER THERAPEUTIC PRODUCTS [Concomitant]
     Route: 055
  15. MST [Concomitant]
     Route: 048
     Dates: start: 20110225, end: 20110227
  16. CISPLATIN [Suspect]
     Route: 042
     Dates: start: 20110221, end: 20110223
  17. FLUOROURACIL [Suspect]
     Route: 042
     Dates: start: 20110221, end: 20110223
  18. PALONOSETRON [Concomitant]
     Route: 042
     Dates: start: 20110221
  19. MAGNESIUM SULFATE [Concomitant]
     Route: 042
     Dates: start: 20110221
  20. HEPARIN [Concomitant]
     Route: 042
     Dates: start: 20110221

REACTIONS (3)
  - PNEUMONIA [None]
  - SEPSIS [None]
  - NEUTROPENIA [None]
